FAERS Safety Report 18112237 (Version 3)
Quarter: 2020Q4

REPORT INFORMATION
  Report Type: Spontaneous
  Country: JP (occurrence: JP)
  Receive Date: 20200805
  Receipt Date: 20201125
  Transmission Date: 20210113
  Serious: Yes (Death)
  Sender: FDA-Public Use
  Company Number: JP-AMGEN-JPNSP2020124573

PATIENT
  Age: 23 Year
  Sex: Male
  Weight: 76 kg

DRUGS (9)
  1. FUROSEMIDE. [Concomitant]
     Active Substance: FUROSEMIDE
     Indication: CONGESTIVE CARDIOMYOPATHY
     Dosage: 40 MG, EVERYDAY
     Route: 048
     Dates: start: 20200404, end: 20200704
  2. SPIRONOLACTONE. [Concomitant]
     Active Substance: SPIRONOLACTONE
     Indication: CONGESTIVE CARDIOMYOPATHY
     Dosage: 50 MG, EVERYDAY
     Route: 048
     Dates: start: 20200404, end: 20200704
  3. PIMOBENDAN [Concomitant]
     Active Substance: PIMOBENDAN
     Indication: CONGESTIVE CARDIOMYOPATHY
     Dosage: 5 MG, EVERYDAY
     Route: 048
     Dates: start: 20200601, end: 20200704
  4. TORASEMIDE [Concomitant]
     Active Substance: TORSEMIDE
     Indication: CONGESTIVE CARDIOMYOPATHY
     Dosage: 4 MG, EVERYDAY
     Route: 048
     Dates: start: 20200404, end: 20200704
  5. CORALAN [Suspect]
     Active Substance: IVABRADINE HYDROCHLORIDE
     Indication: CONGESTIVE CARDIOMYOPATHY
     Dosage: UNK
     Route: 048
     Dates: start: 20200701, end: 20200704
  6. CORALAN [Suspect]
     Active Substance: IVABRADINE HYDROCHLORIDE
     Dosage: UNK UNK, UNK
     Route: 065
  7. HALFDIGOXIN [Concomitant]
     Active Substance: DIGOXIN
     Indication: CONGESTIVE CARDIOMYOPATHY
     Dosage: 0.125 MG, EVERYDAY
     Route: 048
     Dates: start: 20200404, end: 20200704
  8. BISOPROLOL [Concomitant]
     Active Substance: BISOPROLOL
     Indication: CONGESTIVE CARDIOMYOPATHY
     Dosage: 1.25 MG, EVERYDAY
     Route: 048
     Dates: start: 20200616, end: 20200704
  9. LOSARTAN K [Concomitant]
     Active Substance: LOSARTAN POTASSIUM
     Indication: CONGESTIVE CARDIOMYOPATHY
     Dosage: 25 MG, EVERYDAY
     Route: 048
     Dates: start: 20200404, end: 20200704

REACTIONS (2)
  - Off label use [Unknown]
  - Ventricular fibrillation [Fatal]

NARRATIVE: CASE EVENT DATE: 20200705
